FAERS Safety Report 8305344-9 (Version None)
Quarter: 2012Q2

REPORT INFORMATION
  Report Type: 
  Country: None (occurrence: None)
  Receive Date: 20120423
  Receipt Date: 20120411
  Transmission Date: 20120825
  Serious: Yes (Hospitalization)
  Sender: FDA-Public Use
  Company Number: US-DX529-2011DX000090

PATIENT
  Age: 47 Year
  Sex: Female
  Weight: 82.56 kg

DRUGS (13)
  1. EPIPEN [Concomitant]
     Indication: PRODUCT USED FOR UNKNOWN INDICATION
  2. PHENERGAN [Concomitant]
     Indication: PRODUCT USED FOR UNKNOWN INDICATION
  3. KALBITOR [Suspect]
     Route: 058
     Dates: start: 20111201, end: 20111201
  4. CINRYZE [Suspect]
     Indication: PRODUCT USED FOR UNKNOWN INDICATION
  5. KALBITOR [Suspect]
     Route: 058
     Dates: start: 20111201, end: 20111201
  6. NYSTATIN [Concomitant]
     Indication: PRODUCT USED FOR UNKNOWN INDICATION
  7. LORATADINE [Concomitant]
     Indication: PRODUCT USED FOR UNKNOWN INDICATION
  8. HYDROXYZINE [Concomitant]
     Indication: PRODUCT USED FOR UNKNOWN INDICATION
  9. PROTONIX [Concomitant]
     Indication: PRODUCT USED FOR UNKNOWN INDICATION
  10. ANDROID 5 [Concomitant]
     Indication: PRODUCT USED FOR UNKNOWN INDICATION
  11. ACETIC ACID [Concomitant]
     Indication: PRODUCT USED FOR UNKNOWN INDICATION
  12. KALBITOR [Suspect]
     Indication: HEREDITARY ANGIOEDEMA
     Route: 058
     Dates: start: 20111114, end: 20111114
  13. FERROUS SULFATE TAB [Concomitant]
     Indication: PRODUCT USED FOR UNKNOWN INDICATION

REACTIONS (7)
  - DEVICE RELATED SEPSIS [None]
  - HYPERTENSION [None]
  - NASAL CONGESTION [None]
  - DEVICE RELATED INFECTION [None]
  - COUGH [None]
  - DRUG INEFFECTIVE [None]
  - DRUG EFFECT DELAYED [None]
